FAERS Safety Report 10274435 (Version 1)
Quarter: 2014Q3

REPORT INFORMATION
  Report Type: Spontaneous
  Country: JP (occurrence: JP)
  Receive Date: 20140702
  Receipt Date: 20140702
  Transmission Date: 20150326
  Serious: Yes (Other)
  Sender: FDA-Public Use
  Company Number: US-ASTRAZENECA-2014SE47695

PATIENT
  Weight: 85 kg

DRUGS (4)
  1. BLOPRESS TABLET 8 [Suspect]
     Active Substance: CANDESARTAN CILEXETIL
     Indication: HYPERTENSION
     Route: 048
     Dates: start: 20140604
  2. BLOPRESS TABLET 8 [Suspect]
     Active Substance: CANDESARTAN CILEXETIL
     Indication: HYPERTENSION
     Route: 048
     Dates: end: 2013
  3. BLOPRESS TABLET 8 [Suspect]
     Active Substance: CANDESARTAN CILEXETIL
     Indication: HYPERTENSION
     Route: 048
     Dates: start: 20140528
  4. ADALAT CC [Concomitant]
     Active Substance: NIFEDIPINE
     Indication: HYPERTENSION
     Route: 048
     Dates: end: 2013

REACTIONS (5)
  - Peripheral swelling [Unknown]
  - Loss of consciousness [Unknown]
  - Fall [None]
  - Epilepsy [None]
  - Feeling abnormal [None]

NARRATIVE: CASE EVENT DATE: 20140528
